FAERS Safety Report 25265004 (Version 3)
Quarter: 2025Q2

REPORT INFORMATION
  Report Type: Report from Study
  Country: DE (occurrence: DE)
  Receive Date: 20250502
  Receipt Date: 20250529
  Transmission Date: 20250717
  Serious: Yes (Hospitalization)
  Sender: IPSEN BIOPHARMACEUTICALS, INC.
  Company Number: DE-IPSEN Group, Research and Development-2025-10165

PATIENT
  Age: 79 Year
  Sex: Male

DRUGS (1)
  1. LANREOTIDE ACETATE [Suspect]
     Active Substance: LANREOTIDE ACETATE
     Indication: Gastroenteropancreatic neuroendocrine tumour disease
     Route: 058
     Dates: start: 20250410, end: 20250410

REACTIONS (3)
  - General physical health deterioration [Not Recovered/Not Resolved]
  - Frequent bowel movements [Unknown]
  - Dehydration [Unknown]

NARRATIVE: CASE EVENT DATE: 20250410
